FAERS Safety Report 4357663-9 (Version None)
Quarter: 2004Q2

REPORT INFORMATION
  Report Type: 
  Country: None (occurrence: None)
  Receive Date: 20040513
  Receipt Date: 20040126
  Transmission Date: 20050107
  Serious: Yes (Hospitalization, Disabling, Other)
  Sender: FDA-Public Use
  Company Number: US-MERCK-0401USA01976

PATIENT
  Age: 55 Year
  Sex: Female
  Weight: 105 kg

DRUGS (8)
  1. [THERAPY UNSPECIFIED] [Concomitant]
     Route: 065
  2. DOXEPIN HYDROCHLORIDE [Concomitant]
     Route: 065
  3. NEURONTIN [Concomitant]
     Route: 065
  4. SERZONE [Concomitant]
     Route: 065
  5. OXYCODONE [Concomitant]
     Route: 065
  6. VIOXX [Suspect]
     Indication: ARTHRITIS
     Route: 048
     Dates: start: 20011206, end: 20020205
  7. ZANAFLEX [Concomitant]
     Route: 065
  8. ULTRAM [Concomitant]
     Route: 065

REACTIONS (27)
  - ACUTE CORONARY SYNDROME [None]
  - ACUTE MYOCARDIAL INFARCTION [None]
  - AORTIC ATHEROSCLEROSIS [None]
  - AORTIC DILATATION [None]
  - BACK PAIN [None]
  - CARDIAC DISORDER [None]
  - CONFUSIONAL STATE [None]
  - CONVULSION [None]
  - CORONARY ARTERY DISEASE [None]
  - CORONARY ARTERY OCCLUSION [None]
  - DRUG HYPERSENSITIVITY [None]
  - FALL [None]
  - GENERALISED ANXIETY DISORDER [None]
  - HAEMORRHAGE INTRACRANIAL [None]
  - HYPERTENSION [None]
  - HYPOAESTHESIA [None]
  - INTERNATIONAL NORMALISED RATIO DECREASED [None]
  - MITRAL VALVE PROLAPSE [None]
  - PAIN [None]
  - PANIC ATTACK [None]
  - PULMONARY CONGESTION [None]
  - RETINAL ISCHAEMIA [None]
  - RHINITIS [None]
  - SCAR [None]
  - SLEEP APNOEA SYNDROME [None]
  - VENTRICULAR HYPOKINESIA [None]
  - VISUAL ACUITY REDUCED [None]
